FAERS Safety Report 9804687 (Version 2)
Quarter: 2014Q1

REPORT INFORMATION
  Report Type: Spontaneous
  Country: US (occurrence: US)
  Receive Date: 20140108
  Receipt Date: 20140108
  Transmission Date: 20141002
  Serious: Yes (Hospitalization)
  Sender: FDA-Public Use
  Company Number: US-B.I. PHARMACEUTICALS,INC./RIDGEFIELD-2013-BI-21802BP

PATIENT
  Age: 65 Year
  Sex: Male
  Weight: 113.4 kg

DRUGS (6)
  1. PRADAXA [Suspect]
     Indication: ANTICOAGULANT THERAPY
     Dosage: 300 MG
     Dates: start: 20120424, end: 20120528
  2. PRADAXA [Suspect]
     Indication: ATRIAL FIBRILLATION
  3. PRADAXA [Suspect]
     Indication: CARDIOVASCULAR EVENT PROPHYLAXIS
  4. PROPAFENONE [Concomitant]
     Indication: ATRIAL FIBRILLATION
     Dosage: 450 MG
     Dates: start: 201204
  5. TOPROL XL [Concomitant]
     Indication: ATRIAL FIBRILLATION
     Dates: start: 201204
  6. LEVOTHYROXINE [Concomitant]

REACTIONS (1)
  - Haemorrhage intracranial [Unknown]
